FAERS Safety Report 10795002 (Version 1)
Quarter: 2015Q1

REPORT INFORMATION
  Report Type: Spontaneous
  Country: US (occurrence: US)
  Receive Date: 20150214
  Receipt Date: 20150214
  Transmission Date: 20150721
  Serious: No
  Sender: FDA-Public Use
  Company Number: US-GLAXOSMITHKLINE-A1067613A

PATIENT

DRUGS (3)
  1. ALLI [Suspect]
     Active Substance: ORLISTAT
  2. ALLI [Suspect]
     Active Substance: ORLISTAT
  3. ALLI [Suspect]
     Active Substance: ORLISTAT
     Indication: WEIGHT DECREASED

REACTIONS (4)
  - Treatment noncompliance [Unknown]
  - Drug administration error [Unknown]
  - Product quality issue [Unknown]
  - Adverse event [Recovered/Resolved]
